FAERS Safety Report 10492950 (Version 1)
Quarter: 2014Q4

REPORT INFORMATION
  Report Type: Spontaneous
  Country: US (occurrence: US)
  Receive Date: 20141002
  Receipt Date: 20141002
  Transmission Date: 20150528
  Serious: No
  Sender: FDA-Public Use
  Company Number: US-GLAXOSMITHKLINE-A1077357A

PATIENT
  Age: 75 Year
  Sex: Male

DRUGS (10)
  1. BLOOD PRESSURE MEDICATION [Suspect]
     Active Substance: UNSPECIFIED INGREDIENT
     Route: 065
  2. ADVAIR HFA [Suspect]
     Active Substance: FLUTICASONE PROPIONATE\SALMETEROL XINAFOATE
     Indication: CHRONIC OBSTRUCTIVE PULMONARY DISEASE
     Dosage: 1PUFF TWICE PER DAY
     Route: 055
     Dates: start: 201403
  3. ONE-A-DAY NOS [Concomitant]
     Active Substance: MINERALS\VITAMINS
  4. UNSPECIFIED MEDICATION [Concomitant]
     Active Substance: UNSPECIFIED INGREDIENT
     Indication: RESPIRATORY TRACT CONGESTION
  5. COUGH SUPPRESSANT [Concomitant]
  6. UNSPECIFIED MEDICATION [Concomitant]
     Active Substance: UNSPECIFIED INGREDIENT
  7. ANTI-CHOLESTEROL MEDICATION [Suspect]
     Active Substance: UNSPECIFIED INGREDIENT
     Route: 065
  8. VENTOLIN HFA [Concomitant]
     Active Substance: ALBUTEROL SULFATE
     Route: 055
  9. ASPIRIN. [Concomitant]
     Active Substance: ASPIRIN
  10. DULCOLAX [Concomitant]
     Active Substance: BISACODYL OR DOCUSATE SODIUM
     Route: 065

REACTIONS (3)
  - Gastrointestinal disorder [Not Recovered/Not Resolved]
  - Abdominal distension [Not Recovered/Not Resolved]
  - Skin odour abnormal [Not Recovered/Not Resolved]

NARRATIVE: CASE EVENT DATE: 201405
